FAERS Safety Report 18003771 (Version 2)
Quarter: 2020Q3

REPORT INFORMATION
  Report Type: Report from Study
  Country: KR (occurrence: KR)
  Receive Date: 20200710
  Receipt Date: 20200716
  Transmission Date: 20201103
  Serious: No
  Sender: FDA-Public Use
  Company Number: KR-B.I. PHARMACEUTICALS,INC./RIDGEFIELD-2017-BI-063771

PATIENT
  Age: 56 Year
  Sex: Male
  Weight: 86 kg

DRUGS (12)
  1. PLAVITOR [Concomitant]
     Indication: ACUTE MYOCARDIAL INFARCTION
     Route: 048
     Dates: start: 20170707
  2. DUOWELL [Concomitant]
     Indication: ACUTE MYOCARDIAL INFARCTION
     Dosage: TOTAL DAILY/UNIT DOSE: 20/10 MG
     Route: 048
     Dates: start: 20170707
  3. DUOWELL [Concomitant]
     Indication: DYSLIPIDAEMIA
  4. DILATREND [Concomitant]
     Active Substance: CARVEDILOL
     Indication: ACUTE MYOCARDIAL INFARCTION
     Route: 048
     Dates: start: 20170707, end: 20170803
  5. MUCOSTA [Concomitant]
     Active Substance: REBAMIPIDE
     Indication: GASTRITIS PROPHYLAXIS
     Route: 048
     Dates: start: 20170707, end: 20171109
  6. JARDIANCE [Suspect]
     Active Substance: EMPAGLIFLOZIN
     Indication: TYPE 2 DIABETES MELLITUS
     Route: 048
     Dates: start: 20170707
  7. GODEX [Concomitant]
     Indication: PROPHYLAXIS
     Route: 048
     Dates: start: 20170707, end: 20180206
  8. LIPIDIL SUPRA [Concomitant]
     Active Substance: FENOFIBRATE
     Indication: DYSLIPIDAEMIA
     Route: 048
     Dates: start: 20170707
  9. MUCOSTA [Concomitant]
     Active Substance: REBAMIPIDE
     Route: 048
     Dates: start: 20171110
  10. DILATREND [Concomitant]
     Active Substance: CARVEDILOL
     Route: 048
     Dates: start: 20170804
  11. DIABEX [Concomitant]
     Active Substance: METFORMIN HYDROCHLORIDE
     Indication: TYPE 2 DIABETES MELLITUS
     Route: 048
     Dates: start: 20170707
  12. DEXILANT [Concomitant]
     Active Substance: DEXLANSOPRAZOLE
     Indication: DYSPEPSIA
     Route: 065
     Dates: start: 20180207

REACTIONS (1)
  - Pollakiuria [Recovered/Resolved]

NARRATIVE: CASE EVENT DATE: 20170804
